FAERS Safety Report 9388609 (Version 2)
Quarter: 2013Q3

REPORT INFORMATION
  Report Type: Spontaneous
  Country: BE (occurrence: BE)
  Receive Date: 20130708
  Receipt Date: 20130802
  Transmission Date: 20140515
  Serious: Yes (Death, Hospitalization, Other)
  Sender: FDA-Public Use
  Company Number: BE-B.I. PHARMACEUTICALS,INC./RIDGEFIELD-2013-BL-00328BL

PATIENT
  Age: 66 Year
  Sex: Female
  Weight: 43 kg

DRUGS (14)
  1. TRAJENTA [Suspect]
     Indication: TYPE 2 DIABETES MELLITUS
     Route: 048
     Dates: start: 20130425, end: 20130511
  2. ZOCOR [Concomitant]
  3. QUINAPRIL [Concomitant]
  4. GLURENORM [Concomitant]
     Dosage: 60 MG
  5. EMCONCOR MITIS [Concomitant]
     Dosage: 2.5 MG
  6. CARDIO ASPIRINE [Concomitant]
  7. AKTON [Concomitant]
  8. NAHCO3 [Concomitant]
  9. CALCIUM CARBONATE [Concomitant]
     Dosage: 1,25 GR
  10. PHOSLO [Concomitant]
  11. FERO-GRAD [Concomitant]
  12. D-CURE [Concomitant]
  13. QUINAPRIL [Concomitant]
  14. AMLOGAL [Concomitant]

REACTIONS (5)
  - General physical health deterioration [Fatal]
  - Cardiac failure [Fatal]
  - Dyspnoea [Fatal]
  - Renal failure acute [Unknown]
  - Vomiting [Unknown]
